FAERS Safety Report 4991714-3 (Version None)
Quarter: 2006Q2

REPORT INFORMATION
  Report Type: 
  Country: None (occurrence: None)
  Receive Date: 20060504
  Receipt Date: 20060424
  Transmission Date: 20061013
  Serious: Yes (Other)
  Sender: FDA-Public Use
  Company Number: FR-GLAXOSMITHKLINE-B0421400A

PATIENT
  Age: 41 Year
  Sex: Male

DRUGS (5)
  1. TELZIR [Suspect]
     Indication: HIV INFECTION
     Dosage: 700MG TWICE PER DAY
     Route: 048
     Dates: start: 20051202, end: 20060323
  2. TRIZIVIR [Suspect]
     Indication: HIV INFECTION
     Dosage: 1TAB TWICE PER DAY
     Route: 048
     Dates: start: 20051202, end: 20060413
  3. KALETRA [Suspect]
     Indication: HIV INFECTION
     Route: 048
     Dates: start: 20051202, end: 20060323
  4. NORVIR [Suspect]
     Indication: HIV INFECTION
     Dosage: 100MG TWICE PER DAY
     Route: 048
     Dates: start: 20051202, end: 20060323
  5. FUZEON [Suspect]
     Indication: HIV INFECTION
     Route: 058
     Dates: start: 20051202, end: 20060323

REACTIONS (2)
  - OCULAR DISCOMFORT [None]
  - VISUAL ACUITY REDUCED [None]
